FAERS Safety Report 12578601 (Version 1)
Quarter: 2016Q3

REPORT INFORMATION
  Report Type: Spontaneous
  Country: FR (occurrence: FR)
  Receive Date: 20160721
  Receipt Date: 20160721
  Transmission Date: 20161109
  Serious: Yes (Hospitalization)
  Sender: FDA-Public Use
  Company Number: FR-PFIZER INC-2016335271

PATIENT
  Age: 46 Year
  Sex: Female
  Weight: 62 kg

DRUGS (2)
  1. ETOPOSIDE MYLAN [Suspect]
     Active Substance: ETOPOSIDE
     Indication: NEUROENDOCRINE TUMOUR
     Dosage: UNK, CYCLIC
     Route: 042
     Dates: start: 20151028, end: 20160406
  2. CARBOPLATINE HOSPIRA [Suspect]
     Active Substance: CARBOPLATIN
     Indication: NEUROENDOCRINE TUMOUR
     Dosage: UNK, CYCLIC
     Route: 042
     Dates: start: 20151028, end: 20160406

REACTIONS (5)
  - Hypomagnesaemia [Recovering/Resolving]
  - Diarrhoea [Unknown]
  - Hypophosphataemia [Recovering/Resolving]
  - Renal tubular disorder [Recovering/Resolving]
  - Hyperparathyroidism [Unknown]

NARRATIVE: CASE EVENT DATE: 20151028
